FAERS Safety Report 9707810 (Version 3)
Quarter: 2014Q1

REPORT INFORMATION
  Report Type: Report from Study
  Country: JP (occurrence: JP)
  Receive Date: 20131125
  Receipt Date: 20140303
  Transmission Date: 20141002
  Serious: Yes (Hospitalization)
  Sender: FDA-Public Use
  Company Number: JP-NOVOPROD-392897

PATIENT
  Age: 59 Year
  Sex: Female
  Weight: 53.8 kg

DRUGS (21)
  1. LIRAGLUTIDE FLEXPEN [Suspect]
     Indication: TYPE 2 DIABETES MELLITUS
     Dosage: 0.3 MG, QD (MORNING)
     Route: 058
     Dates: start: 20121112
  2. LIRAGLUTIDE FLEXPEN [Suspect]
     Dosage: 0.6 MG, QD
     Route: 058
     Dates: start: 20121119
  3. LIRAGLUTIDE FLEXPEN [Suspect]
     Dosage: 0.9 MG, QD
     Route: 058
     Dates: start: 20121126
  4. RENIVEZE [Concomitant]
     Dosage: UNK
     Route: 048
  5. ATELEC [Concomitant]
     Dosage: UNK
     Route: 048
  6. CORINAEL [Concomitant]
     Dosage: UNK (CR)
     Route: 048
  7. DOXAZOSIN                          /00639302/ [Concomitant]
     Dosage: UNK
     Route: 048
  8. SENNAL [Concomitant]
     Dosage: UNK
     Route: 048
  9. PLAVIX [Concomitant]
     Dosage: UNK
     Route: 048
  10. BAYASPIRIN [Concomitant]
     Dosage: UNK
     Route: 048
  11. DIART [Concomitant]
     Dosage: UNK
     Route: 048
  12. CRESTOR [Concomitant]
     Dosage: UNK
     Route: 048
  13. LANSOPRAZOLE [Concomitant]
     Dosage: UNK (OD)
     Route: 048
  14. APORASNON [Concomitant]
     Dosage: UNK
     Route: 048
  15. PREMINENT [Concomitant]
     Dosage: UNK
     Route: 048
  16. NU-LOTAN [Concomitant]
     Dosage: UNK
     Route: 048
  17. MAINTATE [Concomitant]
     Dosage: UNK
     Route: 048
  18. HANGEKOBOKUTO [Concomitant]
     Dosage: UNK
     Route: 048
  19. NESP [Concomitant]
     Dosage: UNK
     Route: 048
  20. ARGAMATE [Concomitant]
     Dosage: UNK
     Route: 048
  21. SORBITOL [Concomitant]
     Dosage: UNK
     Route: 048

REACTIONS (1)
  - Decreased appetite [Recovered/Resolved]
